FAERS Safety Report 7103193-0 (Version None)
Quarter: 2010Q4

REPORT INFORMATION
  Report Type: 
  Country: None (occurrence: None)
  Receive Date: 20101115
  Receipt Date: 20101105
  Transmission Date: 20110411
  Serious: Yes (Hospitalization, Other)
  Sender: FDA-Public Use
  Company Number: US-MERCK-1005USA01517

PATIENT
  Age: 55 Year
  Sex: Female

DRUGS (5)
  1. FOSAMAX [Suspect]
     Indication: OSTEOPENIA
     Route: 048
     Dates: start: 20020613, end: 20030919
  2. FOSAMAX [Suspect]
     Route: 048
     Dates: start: 20031017, end: 20080301
  3. FOSAMAX [Suspect]
     Indication: OSTEOPOROSIS
     Route: 048
     Dates: start: 20020613, end: 20030919
  4. FOSAMAX [Suspect]
     Route: 048
     Dates: start: 20031017, end: 20080301
  5. ACTONEL [Suspect]
     Route: 065
     Dates: start: 20030101, end: 20080301

REACTIONS (23)
  - ABSCESS [None]
  - ARTHROPATHY [None]
  - BONE DENSITY DECREASED [None]
  - BRONCHITIS [None]
  - CELLULITIS [None]
  - CERVICOBRACHIAL SYNDROME [None]
  - CHRONIC OBSTRUCTIVE PULMONARY DISEASE [None]
  - CORONARY ARTERY DISEASE [None]
  - DEVICE FAILURE [None]
  - ELECTROCARDIOGRAM ABNORMAL [None]
  - FISTULA DISCHARGE [None]
  - GINGIVAL PAIN [None]
  - HAEMATURIA [None]
  - HYPERLIPIDAEMIA [None]
  - INFECTION [None]
  - JAW DISORDER [None]
  - JOINT ABSCESS [None]
  - PAIN [None]
  - SENSITIVITY OF TEETH [None]
  - SYNOVIAL CYST [None]
  - TOOTH DISORDER [None]
  - TOOTH EXTRACTION [None]
  - WEIGHT DECREASED [None]
